FAERS Safety Report 18380043 (Version 2)
Quarter: 2020Q4

REPORT INFORMATION
  Report Type: Report from Study
  Country: None (occurrence: FR)
  Receive Date: 20201014
  Receipt Date: 20201121
  Transmission Date: 20210114
  Serious: Yes (Hospitalization, Other)
  Sender: FDA-Public Use
  Company Number: FR-ABBVIE-20K-056-3603466-00

PATIENT
  Age: 51 Year
  Sex: Male
  Weight: 71 kg

DRUGS (3)
  1. HUMIRA [Suspect]
     Active Substance: ADALIMUMAB
     Indication: COLITIS ULCERATIVE
     Route: 058
     Dates: start: 20200507, end: 20200507
  2. HUMIRA [Suspect]
     Active Substance: ADALIMUMAB
     Dosage: WEEK 2
     Route: 058
     Dates: start: 202005, end: 202005
  3. HUMIRA [Suspect]
     Active Substance: ADALIMUMAB
     Dosage: WEEK 4
     Route: 058
     Dates: start: 2020

REACTIONS (2)
  - Gastrointestinal necrosis [Not Recovered/Not Resolved]
  - Strangulated hernia [Not Recovered/Not Resolved]

NARRATIVE: CASE EVENT DATE: 20201004
